FAERS Safety Report 4483382-4 (Version None)
Quarter: 2004Q4

REPORT INFORMATION
  Report Type: 
  Country: None (occurrence: None)
  Receive Date: 20041020
  Receipt Date: 20041005
  Transmission Date: 20050328
  Serious: Yes (Hospitalization)
  Sender: FDA-Public Use
  Company Number: 2004-BL-00166BL

PATIENT
  Age: 48 Year
  Sex: Male

DRUGS (7)
  1. SPIRIVA [Suspect]
     Indication: CHRONIC OBSTRUCTIVE AIRWAYS DISEASE EXACERBATED
     Dosage: 18 MCG   IH
     Dates: start: 20040701, end: 20040719
  2. DIOVANE (VALSARTAN) (TA) [Concomitant]
  3. BURINEX (BUMETANIDE) (TA) [Concomitant]
  4. CORDARONE (AMIODARONE HYDROCHLORIDE) (TA) [Concomitant]
  5. LIPITOR [Concomitant]
  6. BETA-MIMETIC SHORT ACTING  (DIPYRIDAMOLE-HCL) [Concomitant]
  7. BRICANYL [Concomitant]

REACTIONS (1)
  - ATRIAL FIBRILLATION [None]
